FAERS Safety Report 24894571 (Version 1)
Quarter: 2025Q1

REPORT INFORMATION
  Report Type: Spontaneous
  Country: PT (occurrence: PT)
  Receive Date: 20250128
  Receipt Date: 20250128
  Transmission Date: 20250409
  Serious: Yes (Death, Other)
  Sender: IPSEN BIOPHARMACEUTICALS, INC.
  Company Number: PT-IPSEN Group, Research and Development-2025-01881

PATIENT
  Age: 59 Year
  Sex: Male

DRUGS (1)
  1. LANREOTIDE ACETATE [Suspect]
     Active Substance: LANREOTIDE ACETATE
     Indication: Pancreatic neuroendocrine tumour
     Route: 065

REACTIONS (6)
  - Malignant neoplasm progression [Fatal]
  - Hypoglycaemic coma [Unknown]
  - Hyperinsulinaemic hypoglycaemia [Unknown]
  - Pancytopenia [Unknown]
  - Metastases to liver [Unknown]
  - Condition aggravated [Unknown]
